FAERS Safety Report 7497653-0 (Version None)
Quarter: 2011Q2

REPORT INFORMATION
  Report Type: 
  Country: None (occurrence: None)
  Receive Date: 20110523
  Receipt Date: 20110518
  Transmission Date: 20111010
  Serious: Yes (Life-Threatening, Hospitalization, Other)
  Sender: FDA-Public Use
  Company Number: GXKR2011DE01745

PATIENT
  Age: 75 Year
  Sex: Female
  Weight: 86 kg

DRUGS (5)
  1. METFORMIN HCL [Interacting]
     Dosage: 500 MG, QD
     Route: 048
     Dates: start: 20101001, end: 20110118
  2. SPIRONOLACTONE ^RATIOPHARM^ [Interacting]
     Dosage: 25 MG, QD
     Route: 048
     Dates: start: 20100101, end: 20110118
  3. RASILEZ (ALISKIREN) [Suspect]
     Dosage: 150 MG, BID
     Route: 048
     Dates: start: 20070101, end: 20110118
  4. DIOVAN PROTECT [Suspect]
     Indication: HYPERTENSION
     Dosage: 160 MG, BID
     Route: 048
     Dates: start: 20000101, end: 20110118
  5. TORASEMID 1A PHARMA [Interacting]
     Dosage: 20 MG, QD
     Route: 048
     Dates: start: 20070101, end: 20110118

REACTIONS (5)
  - SYNCOPE [None]
  - MALAISE [None]
  - HYPERKALAEMIA [None]
  - RENAL FAILURE ACUTE [None]
  - BLOOD CREATININE INCREASED [None]
